FAERS Safety Report 9159046 (Version 1)
Quarter: 2013Q1

REPORT INFORMATION
  Report Type: Spontaneous
  Country: FR (occurrence: None)
  Receive Date: 20130213
  Receipt Date: 20130213
  Transmission Date: 20140127
  Serious: Yes (Hospitalization)
  Sender: FDA-Public Use
  Company Number: DSM-2013-00179

PATIENT
  Age: 81 Year
  Sex: Female

DRUGS (3)
  1. COOLMETEC [Suspect]
     Indication: HYPERTENSION
     Route: 048
     Dates: start: 20081201, end: 20081210
  2. NOOTROPYL [Suspect]
     Indication: HYPERTENSION
     Route: 048
     Dates: start: 20081015, end: 20081215
  3. VISKEN [Suspect]
     Indication: PRODUCT USED FOR UNKNOWN INDICATION
     Route: 048
     Dates: start: 20081201, end: 20081210

REACTIONS (3)
  - Headache [None]
  - Vertigo [None]
  - Myoclonus [None]
